FAERS Safety Report 11302501 (Version 2)
Quarter: 2015Q3

REPORT INFORMATION
  Report Type: Spontaneous
  Country: PT (occurrence: PT)
  Receive Date: 20150723
  Receipt Date: 20150807
  Transmission Date: 20151125
  Serious: Yes (Life-Threatening, Other)
  Sender: FDA-Public Use
  Company Number: PT-JNJFOC-20150713364

PATIENT
  Age: 4 Year
  Sex: Female
  Weight: 18.3 kg

DRUGS (4)
  1. REMICADE [Suspect]
     Active Substance: INFLIXIMAB
     Indication: COLITIS ULCERATIVE
     Route: 042
  2. REMICADE [Suspect]
     Active Substance: INFLIXIMAB
     Indication: COLITIS ULCERATIVE
     Route: 042
     Dates: start: 2012, end: 20150708
  3. PARACETAMOL [Concomitant]
     Active Substance: ACETAMINOPHEN
     Indication: PREMEDICATION
     Route: 065
  4. REMICADE [Suspect]
     Active Substance: INFLIXIMAB
     Indication: COLITIS ULCERATIVE
     Route: 042

REACTIONS (10)
  - Generalised oedema [Recovered/Resolved]
  - Eyelid oedema [Recovered/Resolved]
  - Drug administered to patient of inappropriate age [Unknown]
  - Vomiting [Recovered/Resolved]
  - Lip oedema [Recovered/Resolved]
  - Infusion related reaction [Recovered/Resolved]
  - Face oedema [Recovered/Resolved]
  - Dysphonia [Recovered/Resolved]
  - Pallor [Recovered/Resolved]
  - Off label use [Unknown]

NARRATIVE: CASE EVENT DATE: 2012
